FAERS Safety Report 12664334 (Version 1)
Quarter: 2016Q3

REPORT INFORMATION
  Report Type: Report from Study
  Country: CN (occurrence: CN)
  Receive Date: 20160818
  Receipt Date: 20160818
  Transmission Date: 20161109
  Serious: Yes (Death, Life-Threatening, Hospitalization)
  Sender: FDA-Public Use
  Company Number: CN-CELGENEUS-035-AB007-14091444

PATIENT
  Age: 59 Year
  Sex: Male
  Weight: 52.5 kg

DRUGS (17)
  1. CIPROFLOXACIN. [Concomitant]
     Active Substance: CIPROFLOXACIN
     Indication: ANTIINFLAMMATORY THERAPY
     Dosage: 10 MILLIGRAM
     Route: 065
     Dates: start: 20140910, end: 20140914
  2. HEMOCOAGULASE [Concomitant]
     Indication: HAEMORRHAGE
     Dosage: 1 KU
     Route: 065
     Dates: start: 20140910, end: 20140912
  3. PLATELETS [Concomitant]
     Active Substance: HUMAN PLATELET, ALLOGENIC
     Dosage: 100 MILLILITER
     Route: 041
     Dates: start: 20140908, end: 20140908
  4. ABRAXANE [Suspect]
     Active Substance: PACLITAXEL
     Indication: PANCREATIC CARCINOMA METASTATIC
     Route: 041
     Dates: start: 20140827, end: 20140904
  5. VORICONAZOLE. [Concomitant]
     Active Substance: VORICONAZOLE
     Indication: ANTIINFLAMMATORY THERAPY
     Dosage: 1 OTHER
     Route: 065
     Dates: start: 20140910, end: 20140912
  6. PLASMA [Concomitant]
     Active Substance: HUMAN PLASMA
     Indication: SUPPLEMENTATION THERAPY
     Route: 065
     Dates: start: 20140906, end: 20140906
  7. VANCOMYCIN [Concomitant]
     Active Substance: VANCOMYCIN
     Indication: ANTIINFLAMMATORY THERAPY
     Route: 065
     Dates: start: 20140909, end: 20140911
  8. ETAMSYLATE [Concomitant]
     Active Substance: ETHAMSYLATE
     Indication: HAEMORRHAGE
     Route: 065
     Dates: start: 20140909, end: 20140912
  9. PLATELETS [Concomitant]
     Active Substance: HUMAN PLATELET, ALLOGENIC
     Indication: SUPPLEMENTATION THERAPY
     Route: 041
     Dates: start: 20140911, end: 20140911
  10. RED BLOOD CELLS [Concomitant]
     Active Substance: HUMAN RED BLOOD CELL
     Indication: SUPPLEMENTATION THERAPY
     Dosage: 2 IU (INTERNATIONAL UNIT)
     Route: 041
     Dates: start: 20140910, end: 20140911
  11. PLASMA [Concomitant]
     Active Substance: HUMAN PLASMA
     Dosage: 50 MILLIGRAM
     Route: 065
     Dates: start: 20140910, end: 20140910
  12. TIGECYCLINE. [Concomitant]
     Active Substance: TIGECYCLINE
     Indication: ANTIINFLAMMATORY THERAPY
     Route: 065
     Dates: start: 20140909, end: 20140914
  13. ALBUMIN [Concomitant]
     Active Substance: ALBUMIN HUMAN
     Indication: SUPPLEMENTATION THERAPY
     Dosage: 10 GRAM
     Route: 065
     Dates: start: 20140910, end: 20140912
  14. VORICONAZOLE. [Concomitant]
     Active Substance: VORICONAZOLE
     Route: 065
     Dates: start: 20140909, end: 20140910
  15. GEMCITABINE [Suspect]
     Active Substance: GEMCITABINE\GEMCITABINE HYDROCHLORIDE
     Indication: PANCREATIC CARCINOMA METASTATIC
     Route: 041
     Dates: start: 20140827, end: 20140904
  16. IMIPENEM [Concomitant]
     Active Substance: IMIPENEM
     Indication: ANTIINFLAMMATORY THERAPY
     Route: 065
     Dates: start: 20140906, end: 20140909
  17. CEFOPERAZONA SULBACTAM [Concomitant]
     Indication: ANTIINFLAMMATORY THERAPY
     Route: 065
     Dates: start: 20140905, end: 20140905

REACTIONS (1)
  - Febrile neutropenia [Fatal]

NARRATIVE: CASE EVENT DATE: 20140905
